FAERS Safety Report 4637986-6 (Version None)
Quarter: 2005Q2

REPORT INFORMATION
  Report Type: 
  Country: None (occurrence: None)
  Receive Date: 20050415
  Receipt Date: 20050328
  Transmission Date: 20051028
  Serious: Yes (Other)
  Sender: FDA-Public Use
  Company Number: USA050394341

PATIENT
  Age: 71 Year
  Sex: Male

DRUGS (2)
  1. CYMBALTA [Suspect]
     Indication: DIABETIC AUTONOMIC NEUROPATHY
     Dosage: 60 MG DAY
  2. HYPERTENSION MEDICATION [Concomitant]

REACTIONS (1)
  - ORTHOSTATIC HYPOTENSION [None]
